FAERS Safety Report 4656518-X (Version None)
Quarter: 2005Q2

REPORT INFORMATION
  Report Type: 
  Country: None (occurrence: None)
  Receive Date: 20050505
  Receipt Date: 20050422
  Transmission Date: 20051028
  Serious: Yes (Hospitalization, Other)
  Sender: FDA-Public Use
  Company Number: 2005064761

PATIENT
  Age: 58 Year
  Sex: Female
  Weight: 95 kg

DRUGS (12)
  1. FLUCONAZOLE [Suspect]
     Indication: INFECTIVE MYOSITIS
     Dosage: 400 MG (INTERVAL: EVERY DAY), ORAL
     Route: 048
     Dates: end: 20050310
  2. CIPROFLOXACIN [Suspect]
     Indication: INFECTIVE MYOSITIS
     Dosage: 1.5 GRAM (INTERVAL: EVERY DAY), INTRAVENOUS
     Route: 042
     Dates: end: 20050311
  3. IMIPENEM (IMIPENEM) [Suspect]
     Indication: INFECTIVE MYOSITIS
     Dosage: 3 GRAM (INTERVAL: EVERY DAY), INTRAVENOUS
     Route: 042
     Dates: end: 20050313
  4. INSULIN HUMAN (INSULIN HUMAN) [Concomitant]
  5. BROMAZEPAM (BROMAZEPAM) [Concomitant]
  6. ACETAMINOPHEN [Concomitant]
  7. RETINOL (RETINOL) [Concomitant]
  8. FUROSEMIDE [Concomitant]
  9. SPIRONOLACTONE [Concomitant]
  10. MIDAZOLAM HCL [Concomitant]
  11. FENTANYL CITRATE [Concomitant]
  12. VANCOMYCIN HYDROCHLORIDE [Concomitant]

REACTIONS (9)
  - ACUTE GENERALISED EXANTHEMATOUS PUSTULOSIS [None]
  - ACUTE RESPIRATORY DISTRESS SYNDROME [None]
  - ASPARTATE AMINOTRANSFERASE INCREASED [None]
  - EPIDERMAL NECROSIS [None]
  - GAMMA-GLUTAMYLTRANSFERASE INCREASED [None]
  - MYELODYSPLASTIC SYNDROME [None]
  - POST PROCEDURAL COMPLICATION [None]
  - QUADRIPARESIS [None]
  - TOXIC SKIN ERUPTION [None]
